FAERS Safety Report 5127974-8 (Version None)
Quarter: 2006Q4

REPORT INFORMATION
  Report Type: 
  Country: None (occurrence: None)
  Receive Date: 20061016
  Receipt Date: 20061005
  Transmission Date: 20070319
  Serious: Yes (Life-Threatening, Hospitalization)
  Sender: FDA-Public Use
  Company Number: GB-AMGEN-UK196179

PATIENT
  Age: 29 Year
  Sex: Female

DRUGS (4)
  1. NEULASTA [Suspect]
     Indication: CHEMOTHERAPY
     Route: 058
     Dates: start: 20061004
  2. FLUOROURACIL [Concomitant]
     Route: 065
     Dates: start: 20061003
  3. EPIRUBICIN [Concomitant]
     Route: 065
     Dates: start: 20061003
  4. CYCLOPHOSPHAMIDE [Concomitant]
     Route: 065
     Dates: start: 20061003

REACTIONS (6)
  - ANAPHYLACTOID REACTION [None]
  - COUGH [None]
  - LOCAL SWELLING [None]
  - SWELLING [None]
  - SWELLING FACE [None]
  - URTICARIA [None]
